FAERS Safety Report 21710310 (Version 3)
Quarter: 2023Q1

REPORT INFORMATION
  Report Type: Spontaneous
  Country: JP (occurrence: JP)
  Receive Date: 20221211
  Receipt Date: 20230207
  Transmission Date: 20230418
  Serious: Yes (Hospitalization, Other)
  Sender: FDA-Public Use
  Company Number: JP-BAYER-2022A166314

PATIENT
  Age: 93 Year
  Sex: Female

DRUGS (2)
  1. XARELTO [Suspect]
     Active Substance: RIVAROXABAN
     Indication: Atrial fibrillation
     Route: 048
  2. ALENDRONATE SODIUM [Concomitant]
     Active Substance: ALENDRONATE SODIUM
     Indication: Osteoporosis
     Dosage: UNK
     Route: 048

REACTIONS (4)
  - Oesophagitis haemorrhagic [Recovered/Resolved]
  - Blood urea nitrogen/creatinine ratio increased [Unknown]
  - Haematemesis [Unknown]
  - Blood loss anaemia [Unknown]
